FAERS Safety Report 10473251 (Version 2)
Quarter: 2014Q3

REPORT INFORMATION
  Report Type: Report from Study
  Country: AU (occurrence: AU)
  Receive Date: 20140924
  Receipt Date: 20140924
  Transmission Date: 20150326
  Serious: Yes (Hospitalization)
  Sender: FDA-Public Use
  Company Number: AU-SA-2014SA111972

PATIENT
  Age: 70 Year
  Sex: Male

DRUGS (8)
  1. CRESTOR [Concomitant]
     Active Substance: ROSUVASTATIN CALCIUM
  2. ACIMAX [Concomitant]
     Active Substance: OMEPRAZOLE
  3. BISOPROLOL [Concomitant]
     Active Substance: BISOPROLOL
  4. AUBAGIO [Suspect]
     Active Substance: TERIFLUNOMIDE
     Indication: MULTIPLE SCLEROSIS
     Route: 048
     Dates: start: 20140721
  5. ALL OTHER THERAPEUTIC PRODUCTS [Concomitant]
     Active Substance: UNSPECIFIED INGREDIENT
  6. AUBAGIO [Suspect]
     Active Substance: TERIFLUNOMIDE
     Indication: MULTIPLE SCLEROSIS
     Route: 048
  7. RAMIPRIL. [Concomitant]
     Active Substance: RAMIPRIL
  8. DIABEX [Concomitant]
     Active Substance: METFORMIN HYDROCHLORIDE

REACTIONS (9)
  - Blood glucose increased [Unknown]
  - Rash pruritic [Unknown]
  - Platelet count increased [Unknown]
  - Fall [Unknown]
  - Hypokinesia [Unknown]
  - Mobility decreased [Unknown]
  - Type 2 diabetes mellitus [Unknown]
  - Nuclear magnetic resonance imaging abnormal [Unknown]
  - Incontinence [Unknown]

NARRATIVE: CASE EVENT DATE: 20140905
